FAERS Safety Report 23675870 (Version 1)
Quarter: 2024Q1

REPORT INFORMATION
  Report Type: Report from Study
  Country: DE (occurrence: DE)
  Receive Date: 20240327
  Receipt Date: 20240327
  Transmission Date: 20240410
  Serious: Yes (Hospitalization, Other)
  Sender: FDA-Public Use
  Company Number: DE-CELLTRION INC.-2024DE007142

PATIENT

DRUGS (8)
  1. TRASTUZUMAB [Suspect]
     Active Substance: TRASTUZUMAB
     Indication: Breast cancer metastatic
     Dosage: 480 MG, EVERY 3 WEEKS
     Route: 042
     Dates: start: 20170901, end: 20180131
  2. TRASTUZUMAB [Suspect]
     Active Substance: TRASTUZUMAB
     Dosage: 420 MG, EVERY 3 WEEKS
     Route: 042
     Dates: start: 20170922, end: 20180131
  3. TRASTUZUMAB [Suspect]
     Active Substance: TRASTUZUMAB
     Dosage: 420 MG, EVERY 3 WEEKS
     Route: 042
     Dates: start: 20180315
  4. ADO-TRASTUZUMAB EMTANSINE [Suspect]
     Active Substance: ADO-TRASTUZUMAB EMTANSINE
     Indication: Breast cancer metastatic
     Dosage: 288 MG, EVERY 3 WEEKS
     Route: 042
     Dates: start: 20180404
  5. DOCETAXEL [Suspect]
     Active Substance: DOCETAXEL\DOCETAXEL ANHYDROUS
     Indication: Breast cancer metastatic
     Dosage: 157 MG, EVERY 1 WEEK (LAST DOSE OF DOCETAXEL PRIOR TO THE EVENT BLOODY NAIL BED WAS ON 10/NOV/2017 (
     Route: 042
     Dates: start: 20170908, end: 20171110
  6. DOCETAXEL [Suspect]
     Active Substance: DOCETAXEL\DOCETAXEL ANHYDROUS
     Dosage: LAST DOSE OF DOCETAXEL PRIOR TO THE EVENT BLOODY NAIL BED WAS ON 10/NOV/2017 (168 MG)
     Route: 042
     Dates: start: 20171110
  7. PERTUZUMAB [Suspect]
     Active Substance: PERTUZUMAB
     Indication: Breast cancer metastatic
     Dosage: 480 MG, EVERY 3 WEEKS
     Route: 042
     Dates: start: 20170922
  8. PERTUZUMAB [Suspect]
     Active Substance: PERTUZUMAB
     Dosage: 480 MG, EVERY 3 WEEKS
     Route: 042
     Dates: start: 20170901, end: 20171127

REACTIONS (16)
  - Nail bed bleeding [Not Recovered/Not Resolved]
  - Metastases to central nervous system [Not Recovered/Not Resolved]
  - Cataract [Not Recovered/Not Resolved]
  - Malignant neoplasm progression [Not Recovered/Not Resolved]
  - Polyneuropathy [Not Recovered/Not Resolved]
  - Fatigue [Not Recovered/Not Resolved]
  - Herpes zoster [Not Recovered/Not Resolved]
  - Pneumonia [Not Recovered/Not Resolved]
  - Urinary tract infection [Not Recovered/Not Resolved]
  - Dysuria [Recovered/Resolved]
  - Nocturia [Not Recovered/Not Resolved]
  - Sensory disturbance [Not Recovered/Not Resolved]
  - Muscular weakness [Recovered/Resolved]
  - Headache [Recovered/Resolved]
  - Dyspnoea [Recovered/Resolved]
  - Drug ineffective [Unknown]

NARRATIVE: CASE EVENT DATE: 20170901
